FAERS Safety Report 7290847-9 (Version None)
Quarter: 2011Q1

REPORT INFORMATION
  Report Type: 
  Country: None (occurrence: None)
  Receive Date: 20110202
  Receipt Date: 20110119
  Transmission Date: 20110831
  Serious: Yes (Hospitalization)
  Sender: FDA-Public Use
  Company Number: DSM-2011-00048

PATIENT
  Age: 67 Year
  Sex: Male
  Weight: 80 kg

DRUGS (2)
  1. SEVIKAR (OLMESARTAN MEDOXOMIL, AMLODIPINE BESILATE) (TABLET) (OLMESART [Suspect]
     Indication: HYPERTENSION
     Dosage: 20/5MG,ORAL
     Route: 048
     Dates: start: 20100929
  2. ACEBUTOLOL BIOGARAN (ACEBUTOLOL) (ACEBUTOLOL) [Concomitant]

REACTIONS (9)
  - CAROTID ARTERIOSCLEROSIS [None]
  - AORTIC DISORDER [None]
  - ECHOCARDIOGRAM ABNORMAL [None]
  - SINUS ARRHYTHMIA [None]
  - MITRAL VALVE DISEASE [None]
  - LEFT ATRIAL DILATATION [None]
  - SYNCOPE [None]
  - BLOOD LACTIC ACID INCREASED [None]
  - QRS AXIS ABNORMAL [None]
